FAERS Safety Report 7233602-8 (Version None)
Quarter: 2011Q1

REPORT INFORMATION
  Report Type: 
  Country: None (occurrence: None)
  Receive Date: 20110119
  Receipt Date: 20100524
  Transmission Date: 20110831
  Serious: No
  Sender: FDA-Public Use
  Company Number: US-PFIZER INC-2010064736

PATIENT
  Age: 56 Year
  Sex: Female

DRUGS (6)
  1. GEMZAR [Suspect]
     Dosage: UNK
  2. FEMARA [Suspect]
     Dosage: UNK
  3. FASLODEX [Suspect]
     Dosage: UNK
  4. AROMASIN [Suspect]
     Dosage: UNK
  5. IXABEPILONE [Suspect]
     Dosage: UNK
  6. TAMOXIFEN [Suspect]
     Dosage: UNK

REACTIONS (2)
  - DISEASE PROGRESSION [None]
  - BREAST CANCER METASTATIC [None]
